FAERS Safety Report 7478280-8 (Version None)
Quarter: 2011Q2

REPORT INFORMATION
  Report Type: 
  Country: None (occurrence: None)
  Receive Date: 20110513
  Receipt Date: 20110510
  Transmission Date: 20111010
  Serious: Yes (Other)
  Sender: FDA-Public Use
  Company Number: PHHY2010BR74671

PATIENT
  Sex: Male

DRUGS (6)
  1. CLOPIDOGREL [Concomitant]
     Indication: EFFUSION
     Dosage: 75 MG, QD
  2. LOVAZA [Concomitant]
     Dosage: 1 DF, QD
  3. TRILEPTAL [Suspect]
     Indication: CEREBROVASCULAR ACCIDENT
     Dosage: 300 MG, BID
     Route: 048
  4. SOMALGIN [Concomitant]
     Indication: EFFUSION
     Dosage: 100 MG, QD
  5. LIPITOR [Concomitant]
     Indication: BLOOD CHOLESTEROL
     Dosage: 20 MG, QD
     Route: 048
  6. SERTRALINE HYDROCHLORIDE [Concomitant]
     Indication: DEPRESSION
     Dosage: 1 TO 1/2 TABLET PER DAY
     Dates: start: 20100501

REACTIONS (2)
  - CEREBROVASCULAR ACCIDENT [None]
  - ARTHRALGIA [None]
